FAERS Safety Report 7795333-5 (Version None)
Quarter: 2011Q3

REPORT INFORMATION
  Report Type: 
  Country: None (occurrence: None)
  Receive Date: 20110930
  Receipt Date: 20110921
  Transmission Date: 20111222
  Serious: Yes (Hospitalization)
  Sender: FDA-Public Use
  Company Number: 1055885

PATIENT
  Age: 60 Year
  Sex: Female

DRUGS (5)
  1. CARBOPLATIN [Suspect]
     Indication: OVARIAN CANCER
     Dosage: 241 MG, CYCLIC, INTRAVENOUS DRIP
     Route: 041
     Dates: start: 20110210, end: 20110701
  2. PACLITAXEL [Concomitant]
  3. DEXAMETHASONE SODIUM PHOSPHATE [Concomitant]
  4. (RANIDIL) [Concomitant]
  5. (NAVOBAN) [Concomitant]

REACTIONS (5)
  - ERYTHEMA [None]
  - CHEST DISCOMFORT [None]
  - NAUSEA [None]
  - LARYNGOSPASM [None]
  - VOMITING [None]
